FAERS Safety Report 9190650 (Version 1)
Quarter: 2013Q1

REPORT INFORMATION
  Report Type: Spontaneous
  Country: US (occurrence: None)
  Receive Date: 20130322
  Receipt Date: 20130322
  Transmission Date: 20140127
  Serious: Yes (Congenital Anomaly)
  Sender: FDA-Public Use
  Company Number: 2013HINLIT0056

PATIENT
  Sex: Male

DRUGS (2)
  1. LITHIUM (LITHIUM) UNKNOWN [Suspect]
     Route: 064
  2. BUPROPION (BUPROPION) [Suspect]
     Route: 064

REACTIONS (5)
  - Hypotonia [None]
  - Feeding disorder neonatal [None]
  - Congenital anomaly [None]
  - Weight decrease neonatal [None]
  - Maternal drugs affecting foetus [None]
